FAERS Safety Report 17874348 (Version 3)
Quarter: 2022Q3

REPORT INFORMATION
  Report Type: Spontaneous
  Country: US (occurrence: US)
  Receive Date: 20200609
  Receipt Date: 20220725
  Transmission Date: 20221026
  Serious: Yes (Death, Other)
  Sender: FDA-Public Use
  Company Number: US-SAARTEMIS-SAC202006040310

PATIENT
  Age: 70 Year
  Sex: Male

DRUGS (1)
  1. ZANTAC [Suspect]
     Active Substance: RANITIDINE HYDROCHLORIDE
     Indication: Dyspepsia
     Dosage: 150 MG, QD
     Dates: start: 199001, end: 201901

REACTIONS (4)
  - Renal cancer [Fatal]
  - Hepatic cancer [Fatal]
  - Lung neoplasm malignant [Fatal]
  - Gastric cancer [Fatal]

NARRATIVE: CASE EVENT DATE: 20190501
